FAERS Safety Report 25543916 (Version 3)
Quarter: 2025Q4

REPORT INFORMATION
  Report Type: Report from Study
  Country: JP (occurrence: JP)
  Receive Date: 20250711
  Receipt Date: 20251013
  Transmission Date: 20260118
  Serious: Yes (Hospitalization)
  Sender: RECORDATI
  Company Number: JP-ORPHANEU-2025003225

PATIENT
  Age: 1 Year
  Sex: Female
  Weight: 9 kg

DRUGS (29)
  1. CARBAGLU [Suspect]
     Active Substance: CARGLUMIC ACID
     Indication: Methylmalonic acidaemia
     Dosage: 1600 MG PER DAY, TID
     Dates: start: 20220422, end: 20241224
  2. CARBAGLU [Suspect]
     Active Substance: CARGLUMIC ACID
     Dosage: 600 MG, TID (BEFORE MEALS, MORNING, NOON, NIGHT)
     Dates: start: 20250124
  3. LEVOCARNITINE [Concomitant]
     Active Substance: LEVOCARNITINE
     Indication: Methylmalonic acidaemia
     Dosage: 17 MILLILITER, TID (ORAL SOLUTION 10 PERCENT)
     Dates: start: 20220511, end: 20230523
  4. LEVOCARNITINE [Concomitant]
     Active Substance: LEVOCARNITINE
     Dosage: 18 MILLILITER, TID (ORAL SOLUTION 10 PERCENT)
     Dates: start: 20230524, end: 20230628
  5. LEVOCARNITINE [Concomitant]
     Active Substance: LEVOCARNITINE
     Dosage: 21 MILLILITER, TID (ORAL SOLUTION 10 PERCENT)
     Dates: start: 20230629, end: 20230806
  6. LEVOCARNITINE [Concomitant]
     Active Substance: LEVOCARNITINE
     Dosage: 30 MILLILITER, TID (ORAL SOLUTION 10 PERCENT)
     Dates: start: 20230807, end: 20231207
  7. LEVOCARNITINE [Concomitant]
     Active Substance: LEVOCARNITINE
     Dosage: 36 MILLILITER, TID (ORAL SOLUTION 10 PERCENT)
     Dates: start: 20231208, end: 20231216
  8. LEVOCARNITINE [Concomitant]
     Active Substance: LEVOCARNITINE
     Dosage: 30 MILLILITER, TID (ORAL SOLUTION 10 PERCENT)
     Dates: start: 20240219, end: 20240221
  9. LEVOCARNITINE [Concomitant]
     Active Substance: LEVOCARNITINE
     Dosage: 35 MILLILITER, TID (ORAL SOLUTION 10 PERCENT)
     Dates: start: 20240222, end: 20240223
  10. LEVOCARNITINE [Concomitant]
     Active Substance: LEVOCARNITINE
     Dosage: 35 MILLILITER, TID (ORAL SOLUTION 10 PERCENT)
     Dates: start: 20240222, end: 20240223
  11. LEVOCARNITINE [Concomitant]
     Active Substance: LEVOCARNITINE
     Dosage: 30 MILLILITER, TID (ORAL SOLUTION 10 PERCENT)
     Dates: start: 20240224, end: 20240513
  12. LEVOCARNITINE [Concomitant]
     Active Substance: LEVOCARNITINE
     Dosage: 35 MILLILITER, TID (ORAL SOLUTION 10 PERCENT)
     Dates: start: 20240517, end: 202405
  13. LEVOCARNITINE [Concomitant]
     Active Substance: LEVOCARNITINE
     Dosage: 30 MILLILITER, TID (ORAL SOLUTION 10 PERCENT)
     Dates: start: 20240519, end: 20241224
  14. LEVOCARNITINE [Concomitant]
     Active Substance: LEVOCARNITINE
     Dosage: 3360 MG/DAY (INJECTION 1000MG SYRINGE)
     Dates: start: 20240217, end: 20240218
  15. LEVOCARNITINE [Concomitant]
     Active Substance: LEVOCARNITINE
     Dosage: 3500MG/DAILY (INJECTION 1000MG SYRINGE)
     Dates: start: 20240517, end: 20240518
  16. LEVOCARNITINE [Concomitant]
     Active Substance: LEVOCARNITINE
     Dosage: 15 MILLILITER, TID (ORAL SOLUTION 10 PERCENT)
     Dates: start: 20250206
  17. CELLCEPT [Concomitant]
     Active Substance: MYCOPHENOLATE MOFETIL
     Indication: Liver transplant
     Dosage: 120 MG, BID (CAPSULES 250)
  18. FUROSEMIDE [Concomitant]
     Active Substance: FUROSEMIDE
     Indication: Liver transplant
     Dosage: 15 MG, TID (FINE GRANULES 4 PERCENT)
     Dates: end: 20250512
  19. FUROSEMIDE [Concomitant]
     Active Substance: FUROSEMIDE
     Dosage: 3.5 MG, TID
     Route: 048
     Dates: start: 20250512, end: 20250630
  20. URSO [Concomitant]
     Active Substance: URSODIOL
     Indication: Liver transplant
     Dosage: 150 MG, TID (GRANULES 5 PERCENT)
  21. LANSOPRAZOLE [Concomitant]
     Active Substance: LANSOPRAZOLE
     Indication: Liver transplant
     Dosage: 0.5 TABLET, DAILY (ORALLY DISINTEGRATING TABLETS)
  22. PROGRAF [Concomitant]
     Active Substance: TACROLIMUS
     Indication: Liver transplant
     Dosage: 2 DOSAGE FORM, BID (GRANULES 0.2MG, 2 SACHETS, BID)
  23. PROGRAF [Concomitant]
     Active Substance: TACROLIMUS
     Dosage: 2 C.P., BID (GRANULES 0.5MG)
  24. SULFAMETHOXAZOLE\TRIMETHOPRIM [Concomitant]
     Active Substance: SULFAMETHOXAZOLE\TRIMETHOPRIM
     Indication: Liver transplant
     Dosage: 0.75 UNKNOWN UNITS /DAILY (COMBINATION GRANULES)
  25. MOSAPRIDE CITRATE [Concomitant]
     Active Substance: MOSAPRIDE CITRATE
     Indication: Liver transplant
     Dosage: 4.5 MG, TID (POWDER 1 PERCENT)
     Route: 048
     Dates: end: 20250630
  26. PREDNISOLONE [Concomitant]
     Active Substance: PREDNISOLONE
     Indication: Liver transplant
     Dosage: 1.5 MG/DAY
     Route: 048
     Dates: end: 20250512
  27. PREDNISOLONE [Concomitant]
     Active Substance: PREDNISOLONE
     Dosage: 1 MG/DAY
     Route: 048
     Dates: start: 20250512
  28. MIYA-BM [Concomitant]
     Active Substance: CLOSTRIDIUM BUTYRICUM SPORES STRAIN M-55
     Indication: Liver transplant
     Dosage: 1 GRAM, TID, DAILY
     Route: 048
  29. DIPYRIDAMOLE [Concomitant]
     Active Substance: DIPYRIDAMOLE
     Indication: Liver transplant
     Dosage: 60 MG, TID (POWDER 12.5 PERCENT)
     Dates: end: 20250630

REACTIONS (30)
  - Bronchitis [Unknown]
  - Bronchitis [Unknown]
  - Bacterial infection [Unknown]
  - Adenovirus infection [Unknown]
  - Norovirus infection [Recovered/Resolved]
  - Enterocolitis [Unknown]
  - Adenovirus infection [Recovering/Resolving]
  - Bronchitis [Recovering/Resolving]
  - Cough [Recovering/Resolving]
  - Cough [Recovering/Resolving]
  - Cough [Recovering/Resolving]
  - Viral rash [Recovering/Resolving]
  - Viral infection [Recovering/Resolving]
  - Mycoplasma infection [Recovering/Resolving]
  - Influenza [Recovering/Resolving]
  - Influenza [Unknown]
  - Nasopharyngitis [Recovering/Resolving]
  - Pyrexia [Recovering/Resolving]
  - Pyrexia [Recovering/Resolving]
  - Pyrexia [Recovering/Resolving]
  - Pyrexia [Recovering/Resolving]
  - Pyrexia [Recovering/Resolving]
  - Diarrhoea [Recovering/Resolving]
  - Vomiting [Recovering/Resolving]
  - Vomiting [Recovering/Resolving]
  - Vomiting [Recovering/Resolving]
  - Vomiting [Recovering/Resolving]
  - Vomiting [Recovering/Resolving]
  - Vomiting [Recovering/Resolving]
  - Off label use [Recovered/Resolved]

NARRATIVE: CASE EVENT DATE: 20230423
